FAERS Safety Report 5673699-X (Version None)
Quarter: 2008Q1

REPORT INFORMATION
  Report Type: 
  Country: None (occurrence: None)
  Receive Date: 20080319
  Receipt Date: 20080311
  Transmission Date: 20080703
  Serious: Yes (Other)
  Sender: FDA-Public Use
  Company Number: FR-PFIZER INC-2008009585

PATIENT
  Age: 59 Year
  Sex: Female

DRUGS (5)
  1. LYRICA [Suspect]
     Indication: NEUROMYOPATHY
     Route: 048
  2. CHONDROITIN SULFATE SODIUM [Concomitant]
  3. SPIRONOLACTONE [Concomitant]
  4. PREDNISONE [Concomitant]
  5. POTASSIUM CHLORIDE [Concomitant]

REACTIONS (2)
  - EYELID OEDEMA [None]
  - FACE OEDEMA [None]
